FAERS Safety Report 6066973-9 (Version None)
Quarter: 2009Q1

REPORT INFORMATION
  Report Type: 
  Country: None (occurrence: None)
  Receive Date: 20090205
  Receipt Date: 20090203
  Transmission Date: 20090719
  Serious: Yes (Hospitalization)
  Sender: FDA-Public Use
  Company Number: AU-BRISTOL-MYERS SQUIBB COMPANY-14493357

PATIENT
  Age: 75 Year
  Sex: Male

DRUGS (5)
  1. KARVEZIDE TABS [Suspect]
     Dosage: 1 DOSE UNSPEC 1 TIME KARVEZIDE NOS
     Route: 048
  2. ASPIRIN [Suspect]
     Dosage: FORM = CAPS 1 TIME ASPIRIN SUSTAINED RELEASE
     Route: 048
  3. CELEBREX [Suspect]
     Dosage: CAPS,2 TIMES
     Route: 048
     Dates: start: 20000101, end: 20070226
  4. FRUSEMIDE [Suspect]
     Dosage: TABS,1 TIME
     Route: 048
     Dates: start: 20070219, end: 20070226
  5. LITHIUM CARBONATE [Suspect]
     Indication: DEPRESSION
     Dosage: TABS,2 TIMES
     Route: 048
     Dates: start: 19890101, end: 20070226

REACTIONS (2)
  - DEHYDRATION [None]
  - RENAL FAILURE ACUTE [None]
